FAERS Safety Report 6142700-1 (Version None)
Quarter: 2009Q2

REPORT INFORMATION
  Report Type: 
  Country: None (occurrence: None)
  Receive Date: 20090403
  Receipt Date: 20090325
  Transmission Date: 20091009
  Serious: Yes (Other)
  Sender: FDA-Public Use
  Company Number: US-JNJFOC-20090307123

PATIENT
  Sex: Female
  Weight: 84.37 kg

DRUGS (3)
  1. DURAGESIC-100 [Suspect]
     Indication: FIBROMYALGIA
     Route: 062
  2. SOMA [Concomitant]
     Indication: FIBROMYALGIA
     Dosage: TWO - THREE TIMES A DAY
     Route: 048
  3. CYMBALTA [Concomitant]
     Indication: FIBROMYALGIA
     Route: 048

REACTIONS (7)
  - ANAEMIA [None]
  - APPLICATION SITE EROSION [None]
  - DELIRIUM TREMENS [None]
  - DRUG DOSE OMISSION [None]
  - FIBROMYALGIA [None]
  - PRODUCT QUALITY ISSUE [None]
  - WRONG TECHNIQUE IN DRUG USAGE PROCESS [None]
